FAERS Safety Report 4393614-9 (Version None)
Quarter: 2004Q3

REPORT INFORMATION
  Report Type: 
  Country: None (occurrence: None)
  Receive Date: 20040708
  Receipt Date: 20040708
  Transmission Date: 20050211
  Serious: Yes (Other)
  Sender: FDA-Public Use
  Company Number: None

PATIENT
  Age: 48 Year
  Sex: Female
  Weight: 77.1115 kg

DRUGS (10)
  1. GAMIMUNE [Suspect]
     Indication: MULTIPLE SCLEROSIS
     Dosage: 30 GM DAILY X 2 INTRAVENOUS
     Route: 042
     Dates: start: 20040223, end: 20040224
  2. DIPHENHYDRAMINE [Concomitant]
  3. NEURONTIN [Concomitant]
  4. LORAZEPAM [Concomitant]
  5. CELLCEPT [Concomitant]
  6. PREDNISONE [Concomitant]
  7. ELAVIL [Concomitant]
  8. NEXIUM [Concomitant]
  9. DARVOCET [Concomitant]
  10. DURAGESIC [Concomitant]

REACTIONS (3)
  - HEPATITIS B POSITIVE [None]
  - HEPATITIS C POSITIVE [None]
  - PHARMACEUTICAL PRODUCT COMPLAINT [None]
